FAERS Safety Report 9701562 (Version 1)
Quarter: 2013Q4

REPORT INFORMATION
  Report Type: Report from Study
  Country: IT (occurrence: IT)
  Receive Date: 20131121
  Receipt Date: 20131121
  Transmission Date: 20140711
  Serious: Yes (Other)
  Sender: FDA-Public Use
  Company Number: IT-ROCHE-1307039

PATIENT
  Sex: 0

DRUGS (2)
  1. CAPECITABINE [Suspect]
     Indication: NEUROENDOCRINE TUMOUR
     Route: 050
  2. OXALIPLATIN [Suspect]
     Indication: NEUROENDOCRINE TUMOUR
     Route: 042

REACTIONS (2)
  - Neurotoxicity [Unknown]
  - Diarrhoea [Unknown]
